FAERS Safety Report 25639692 (Version 2)
Quarter: 2025Q3

REPORT INFORMATION
  Report Type: Spontaneous
  Country: US (occurrence: US)
  Receive Date: 20250804
  Receipt Date: 20250818
  Transmission Date: 20251020
  Serious: No
  Sender: PFIZER
  Company Number: US-PFIZER INC-202500152617

PATIENT
  Age: 40 Year
  Sex: Female
  Weight: 68.04 kg

DRUGS (1)
  1. BICILLIN L-A [Suspect]
     Active Substance: PENICILLIN G BENZATHINE
     Indication: Syphilis
     Route: 030

REACTIONS (1)
  - Recalled product administered [Unknown]
